FAERS Safety Report 7878043-5 (Version None)
Quarter: 2011Q4

REPORT INFORMATION
  Report Type: 
  Country: None (occurrence: None)
  Receive Date: 20111101
  Receipt Date: 20111027
  Transmission Date: 20120403
  Serious: Yes (Hospitalization, Other)
  Sender: FDA-Public Use
  Company Number: US-AMGEN-USASP2011046921

PATIENT
  Sex: Female

DRUGS (2)
  1. ENBREL [Suspect]
     Indication: RHEUMATOID ARTHRITIS
     Dosage: 50 MG, QWK
     Dates: start: 20090701
  2. ENBREL [Suspect]
     Dosage: 50 MG, QWK
     Dates: start: 20110501

REACTIONS (3)
  - DEMENTIA [None]
  - THERAPEUTIC RESPONSE DECREASED [None]
  - CEREBROVASCULAR ACCIDENT [None]
